FAERS Safety Report 6004402-1 (Version None)
Quarter: 2008Q4

REPORT INFORMATION
  Report Type: 
  Country: None (occurrence: None)
  Receive Date: 20081216
  Receipt Date: 20081203
  Transmission Date: 20090506
  Serious: Yes (Other)
  Sender: FDA-Public Use
  Company Number: US-GENENTECH-273355

PATIENT

DRUGS (1)
  1. BEVACIZUMAB [Suspect]
     Indication: RENAL CELL CARCINOMA
     Dosage: 10 MG/KG, DAYS 1+15
     Route: 042
     Dates: start: 20080425

REACTIONS (1)
  - LIPASE INCREASED [None]
